FAERS Safety Report 5150206-1 (Version None)
Quarter: 2006Q4

REPORT INFORMATION
  Report Type: 
  Country: None (occurrence: None)
  Receive Date: 20061109
  Receipt Date: 20061109
  Transmission Date: 20070319
  Serious: Yes (Other)
  Sender: FDA-Public Use
  Company Number: None

PATIENT
  Sex: Male
  Weight: 63.9572 kg

DRUGS (1)
  1. DAYTRANA [Suspect]
     Indication: ATTENTION DEFICIT/HYPERACTIVITY DISORDER
     Dosage: DERMAL
     Route: 062

REACTIONS (4)
  - ANGIONEUROTIC OEDEMA [None]
  - DYSPNOEA [None]
  - EYE SWELLING [None]
  - SWOLLEN TONGUE [None]
